FAERS Safety Report 4394700-X (Version None)
Quarter: 2004Q3

REPORT INFORMATION
  Report Type: 
  Country: None (occurrence: None)
  Receive Date: 20040712
  Receipt Date: 20040707
  Transmission Date: 20050211
  Serious: Yes (Other)
  Sender: FDA-Public Use
  Company Number: PT-MERCK-0407PRT00003

PATIENT
  Age: 50 Year
  Sex: Female
  Weight: 52 kg

DRUGS (5)
  1. ALBUTEROL SULFATE [Concomitant]
     Route: 065
  2. BETAMETHASONE DIPROPIONATE [Concomitant]
     Route: 065
  3. VIOXX [Suspect]
     Route: 048
     Dates: start: 20021201
  4. SULFAMETHOXAZOLE AND TRIMETHOPRIM [Concomitant]
     Route: 065
  5. TIOTROPIUM BROMIDE [Concomitant]
     Route: 065

REACTIONS (5)
  - ABDOMINAL PAIN [None]
  - DYSPNOEA [None]
  - FACE OEDEMA [None]
  - LOCALISED OEDEMA [None]
  - NAUSEA [None]
